FAERS Safety Report 7942356-9 (Version None)
Quarter: 2011Q4

REPORT INFORMATION
  Report Type: 
  Country: None (occurrence: None)
  Receive Date: 20111122
  Receipt Date: 20110830
  Transmission Date: 20120403
  Serious: Yes (Other)
  Sender: FDA-Public Use
  Company Number: PHEH2011US01830

PATIENT
  Age: 40 Year
  Sex: Female

DRUGS (22)
  1. SYNTHROID [Concomitant]
  2. CELEXA [Concomitant]
  3. FAMOTIDINE [Concomitant]
  4. VALACYCLOVIR [Concomitant]
  5. FAMPRIDINE (FAMPRIDINE) [Concomitant]
  6. OXYCODONE (OXYCODONE) TABLET [Concomitant]
  7. SUMATRIPTAN (SUMATRIPTAN) [Concomitant]
  8. PROVIGIL [Concomitant]
  9. LORAZEPAM [Concomitant]
  10. TRAZODONE HCL [Concomitant]
  11. GILENYA [Suspect]
     Indication: RELAPSING-REMITTING MULTIPLE SCLEROSIS
     Dosage: 0.5 MG, QD, ORAL
     Route: 048
     Dates: start: 20110614
  12. MULTIVITAM (VITAMINS NOS) [Concomitant]
  13. MECLIZINE [Concomitant]
  14. CALCIUM WITH VITAMIN D (CALCIUM PHOSPHATE, CALCIUM SODIUM LACTATE, ERG [Concomitant]
  15. GABAPENTIN [Concomitant]
  16. MIRAPEX [Concomitant]
  17. BACLOFEN [Concomitant]
  18. ABILIFY [Concomitant]
  19. VITAMIN D [Concomitant]
  20. SIMVASTATIN [Concomitant]
  21. XANAX [Concomitant]
  22. FLEXERIL [Concomitant]

REACTIONS (12)
  - CHILLS [None]
  - DIPLOPIA [None]
  - MULTIPLE SCLEROSIS RELAPSE [None]
  - NAUSEA [None]
  - SEDATION [None]
  - GAIT DISTURBANCE [None]
  - PYREXIA [None]
  - BACK PAIN [None]
  - FALL [None]
  - PAIN [None]
  - VISION BLURRED [None]
  - FATIGUE [None]
